FAERS Safety Report 15634667 (Version 7)
Quarter: 2019Q2

REPORT INFORMATION
  Report Type: Report from Study
  Country: US (occurrence: US)
  Receive Date: 20181119
  Receipt Date: 20190418
  Transmission Date: 20190711
  Serious: Yes (Hospitalization)
  Sender: FDA-Public Use
  Company Number: US-ACTELION-A-NJ2018-181857

PATIENT
  Age: 82 Year
  Sex: Male

DRUGS (16)
  1. UPTRAVI [Suspect]
     Active Substance: SELEXIPAG
     Dosage: 200 MCG, BID
     Route: 048
     Dates: end: 201903
  2. OXYGEN. [Concomitant]
     Active Substance: OXYGEN
  3. COENZYME Q10 [Concomitant]
     Active Substance: UBIDECARENONE
     Dosage: 100 MG, QD
  4. TADALAFIL. [Concomitant]
     Active Substance: TADALAFIL
     Dosage: 40 MG, QD
  5. UPTRAVI [Suspect]
     Active Substance: SELEXIPAG
     Indication: PULMONARY ARTERIAL HYPERTENSION
     Dosage: 400 MCG, BID
     Route: 048
     Dates: start: 20181003, end: 201903
  6. LOSARTAN POTASSIUM. [Concomitant]
     Active Substance: LOSARTAN POTASSIUM
  7. LEVOTHYROXINE. [Concomitant]
     Active Substance: LEVOTHYROXINE
     Dosage: 75 MCG, QD
     Route: 048
  8. ADCIRCA [Concomitant]
     Active Substance: TADALAFIL
     Dosage: 40 MG, QD
     Dates: start: 20180831
  9. INSULIN DEGLUDEC [Concomitant]
     Active Substance: INSULIN DEGLUDEC
     Dosage: 100 U/ML, DAILY
     Route: 058
  10. GLIMEPIRIDE. [Concomitant]
     Active Substance: GLIMEPIRIDE
     Dosage: 4 MG, BID
     Route: 048
  11. FERROUS SULFATE. [Concomitant]
     Active Substance: FERROUS SULFATE
  12. OPSUMIT [Suspect]
     Active Substance: MACITENTAN
     Indication: PULMONARY ARTERIAL HYPERTENSION
     Dosage: 10 MG, QD
     Route: 048
     Dates: start: 20181003
  13. ATORVASTATIN [Concomitant]
     Active Substance: ATORVASTATIN
     Dosage: 40 MG, QD
     Route: 048
  14. BUMETANIDE. [Concomitant]
     Active Substance: BUMETANIDE
     Dosage: 2 MG, QD
     Route: 048
  15. CHOLECALCIFEROL [Concomitant]
     Active Substance: CHOLECALCIFEROL
     Dosage: 2000 U, QD
     Route: 048
  16. OMEGA-3 FATTY ACIDS [Concomitant]
     Active Substance: OMEGA-3 FATTY ACIDS
     Dosage: 1200 MG, QD
     Route: 048

REACTIONS (28)
  - Aortic valve incompetence [Unknown]
  - Hypoxia [Unknown]
  - Tenderness [Unknown]
  - Pulmonary oedema [Unknown]
  - Pulmonary hypertension [Unknown]
  - Dyspnoea [Unknown]
  - Troponin increased [Recovered/Resolved]
  - Chest discomfort [Unknown]
  - Hypertension [Unknown]
  - Condition aggravated [Unknown]
  - Myocardial infarction [Unknown]
  - Peripheral swelling [Unknown]
  - Acute myocardial infarction [Recovered/Resolved]
  - Pulmonary fibrosis [Unknown]
  - Pancytopenia [Unknown]
  - Angina pectoris [Unknown]
  - Stent placement [Unknown]
  - Ecchymosis [Unknown]
  - Lymphadenopathy [Unknown]
  - Anaemia [Unknown]
  - Blood iron decreased [Unknown]
  - Diarrhoea [Unknown]
  - Coronary artery occlusion [Unknown]
  - Chest pain [Recovered/Resolved]
  - Bradycardia [Unknown]
  - Dyspnoea exertional [Unknown]
  - Oxygen therapy [Unknown]
  - Emphysema [Unknown]

NARRATIVE: CASE EVENT DATE: 20181105
